FAERS Safety Report 8373520 (Version 2)
Quarter: 2013Q1

REPORT INFORMATION
  Report Type: Spontaneous
  Country: None (occurrence: US)
  Receive Date: 20120128
  Receipt Date: 20130129
  Transmission Date: 20140127
  Serious: No
  Sender: FDA-Public Use
  Company Number: US-ABBOTT-11P-163-0845022-00

PATIENT
  Sex: Female

DRUGS (9)
  1. HUMIRA 40 MG/ 0.8 ML PRE-FILLED SYRINGE [Suspect]
     Indication: PRODUCT USED FOR UNKNOWN INDICATION
     Dates: start: 200706
  2. FLAGYL [Concomitant]
     Indication: PRODUCT USED FOR UNKNOWN INDICATION
  3. CIPRO [Concomitant]
     Indication: PRODUCT USED FOR UNKNOWN INDICATION
  4. IRON INFUSIONS [Concomitant]
     Indication: PRODUCT USED FOR UNKNOWN INDICATION
  5. GABAPENTIN [Concomitant]
     Indication: MIGRAINE PROPHYLAXIS
  6. GABAPENTIN [Concomitant]
     Indication: MIGRAINE PROPHYLAXIS
  7. CALCIUM CHANNEL BLOCKERS [Concomitant]
     Indication: MIGRAINE PROPHYLAXIS
  8. CALCIUM CHANNEL BLOCKERS [Concomitant]
     Indication: MIGRAINE PROPHYLAXIS
  9. MAXALT [Concomitant]
     Indication: PRODUCT USED FOR UNKNOWN INDICATION
     Dosage: RESCUE MED

REACTIONS (10)
  - Arthralgia [Unknown]
  - Intestinal stenosis [Unknown]
  - Rash [Unknown]
  - Migraine [Unknown]
  - Feeling abnormal [Recovered/Resolved]
  - Back pain [Unknown]
  - Adhesion [Unknown]
  - Dysuria [Unknown]
  - Condition aggravated [Unknown]
  - Headache [Unknown]
